FAERS Safety Report 25387232 (Version 1)
Quarter: 2025Q2

REPORT INFORMATION
  Report Type: Report from Study
  Country: JP (occurrence: JP)
  Receive Date: 20250602
  Receipt Date: 20250602
  Transmission Date: 20250716
  Serious: Yes (Hospitalization)
  Sender: ABBVIE
  Company Number: JP-ABBVIE-6026072

PATIENT
  Age: 67 Year
  Sex: Male

DRUGS (2)
  1. VYALEV [Suspect]
     Active Substance: FOSCARBIDOPA\FOSLEVODOPA
     Indication: Parkinson^s disease
     Route: 058
     Dates: start: 20241105
  2. VYALEV [Suspect]
     Active Substance: FOSCARBIDOPA\FOSLEVODOPA
     Route: 058
     Dates: start: 20241205

REACTIONS (17)
  - Infection [Unknown]
  - Product use issue [Unknown]
  - Movement disorder [Unknown]
  - Infusion site mass [Recovered/Resolved]
  - Malaise [Unknown]
  - Somnolence [Unknown]
  - Malaise [Unknown]
  - Infusion site reaction [Unknown]
  - Nausea [Unknown]
  - Infusion site reaction [Unknown]
  - Mobility decreased [Unknown]
  - Incorrect dose administered [Unknown]
  - Discomfort [Unknown]
  - Limb discomfort [Unknown]
  - Wrong technique in product usage process [Unknown]
  - Pain [Unknown]
  - Malaise [Not Recovered/Not Resolved]

NARRATIVE: CASE EVENT DATE: 20240101
